FAERS Safety Report 9508316 (Version 2)
Quarter: 2013Q3

REPORT INFORMATION
  Report Type: Spontaneous
  Country: DK (occurrence: DK)
  Receive Date: 20130909
  Receipt Date: 20130912
  Transmission Date: 20140515
  Serious: Yes (Life-Threatening, Hospitalization, Other)
  Sender: FDA-Public Use
  Company Number: DK-009507513-1309DNK002714

PATIENT
  Sex: Female

DRUGS (2)
  1. MERCILON [Suspect]
     Indication: CONTRACEPTION
     Route: 048
     Dates: start: 201005
  2. NOVYNETTE [Suspect]
     Indication: CONTRACEPTION
     Route: 048

REACTIONS (6)
  - Dyspnoea [Unknown]
  - Hydrocephalus [Unknown]
  - Hemiplegia [Unknown]
  - Eye movement disorder [Unknown]
  - Cerebral thrombosis [Unknown]
  - Speech disorder [Unknown]
